FAERS Safety Report 4280067-4 (Version None)
Quarter: 2004Q1

REPORT INFORMATION
  Report Type: 
  Country: None (occurrence: None)
  Receive Date: 20040126
  Receipt Date: 20040112
  Transmission Date: 20041129
  Serious: Yes (Hospitalization)
  Sender: FDA-Public Use
  Company Number: 2004CG00071

PATIENT
  Age: 66 Year
  Sex: Female

DRUGS (2)
  1. IRESSA [Suspect]
     Indication: BRONCHIAL CARCINOMA
     Dosage: 250 MG QD PO
     Route: 048
     Dates: start: 20020823, end: 20031223
  2. IRESSA [Suspect]
     Indication: LUNG NEOPLASM MALIGNANT
     Dosage: 250 MG QD PO
     Route: 048
     Dates: start: 20020823, end: 20031223

REACTIONS (5)
  - DYSURIA [None]
  - MUSCLE CRAMP [None]
  - OESOPHAGEAL PAIN [None]
  - RASH [None]
  - TUMOUR MARKER INCREASED [None]
